FAERS Safety Report 8494499-1 (Version None)
Quarter: 2012Q3

REPORT INFORMATION
  Report Type: 
  Country: None (occurrence: None)
  Receive Date: 20120709
  Receipt Date: 20120626
  Transmission Date: 20120928
  Serious: Yes (Other)
  Sender: FDA-Public Use
  Company Number: ES-ASTRAZENECA-2012SE43267

PATIENT

DRUGS (2)
  1. PROPOFOL [Suspect]
     Dosage: 10-20 MG AT 30-60 S INTERVALS
     Route: 042
  2. PROPOFOL [Suspect]
     Indication: SEDATIVE THERAPY
     Dosage: 0.5-1 MG/KG
     Route: 042

REACTIONS (1)
  - OXYGEN SATURATION DECREASED [None]
